FAERS Safety Report 10022398 (Version 1)
Quarter: 2014Q1

REPORT INFORMATION
  Report Type: Spontaneous
  Country: US (occurrence: US)
  Receive Date: 20140319
  Receipt Date: 20140319
  Transmission Date: 20141002
  Serious: Yes (Hospitalization)
  Sender: FDA-Public Use
  Company Number: US-JNJFOC-20140306605

PATIENT
  Sex: Female
  Weight: 65.77 kg

DRUGS (2)
  1. XARELTO [Suspect]
     Indication: THROMBOSIS PROPHYLAXIS
     Route: 048
     Dates: start: 201309, end: 2013
  2. XARELTO [Suspect]
     Indication: KNEE ARTHROPLASTY
     Route: 048
     Dates: start: 201309, end: 2013

REACTIONS (4)
  - Nephrolithiasis [Not Recovered/Not Resolved]
  - Red blood cell count decreased [Recovered/Resolved]
  - Urethral obstruction [Recovered/Resolved]
  - Pruritus generalised [Recovered/Resolved]
